FAERS Safety Report 12625458 (Version 1)
Quarter: 2016Q3

REPORT INFORMATION
  Report Type: Spontaneous
  Country: GB (occurrence: GB)
  Receive Date: 20160805
  Receipt Date: 20160805
  Transmission Date: 20161109
  Serious: Yes (Other)
  Sender: FDA-Public Use
  Company Number: GB-PFIZER INC-2016369855

PATIENT
  Age: 28 Year
  Sex: Female
  Weight: 103 kg

DRUGS (2)
  1. IBUPROFEN. [Suspect]
     Active Substance: IBUPROFEN
     Dosage: UNK
     Dates: start: 20160330
  2. CERELLE [Concomitant]
     Active Substance: DESOGESTREL
     Dosage: 1 DF, 1X/DAY(AT THE SAME TIME EACH DAY)
     Dates: start: 20160324

REACTIONS (1)
  - Bronchospasm [Recovered/Resolved]

NARRATIVE: CASE EVENT DATE: 20160330
